FAERS Safety Report 8367810-X (Version None)
Quarter: 2012Q1

REPORT INFORMATION
  Report Type: 
  Country: None (occurrence: None)
  Receive Date: 20120323
  Receipt Date: 20111118
  Transmission Date: 20120608
  Serious: Yes (Hospitalization, Other)
  Sender: FDA-Public Use
  Company Number: 163-21880-11112122

PATIENT
  Age: 68 Year
  Sex: Female

DRUGS (2)
  1. REVLIMID [Suspect]
     Indication: MYELODYSPLASTIC SYNDROME
     Dosage: 5 MG, 1 IN 1 D, PO; 5 MG, 1 IN 1 D, PO
     Route: 048
     Dates: start: 20090401
  2. REVLIMID [Suspect]
     Indication: MYELODYSPLASTIC SYNDROME
     Dosage: 5 MG, 1 IN 1 D, PO; 5 MG, 1 IN 1 D, PO
     Route: 048
     Dates: start: 20081101, end: 20090101

REACTIONS (2)
  - CEREBROVASCULAR ACCIDENT [None]
  - CONFUSIONAL STATE [None]
